FAERS Safety Report 12914555 (Version 1)
Quarter: 2016Q4

REPORT INFORMATION
  Report Type: Spontaneous
  Country: US (occurrence: US)
  Receive Date: 20161106
  Receipt Date: 20161106
  Transmission Date: 20170207
  Serious: No
  Sender: FDA-Public Use
  Company Number: US-RELYPSA-RLY2016001837

PATIENT
  Age: 82 Year
  Sex: Female

DRUGS (19)
  1. MULTI VITAMIN [Concomitant]
     Active Substance: VITAMINS
  2. PROTONIX                           /00661201/ [Concomitant]
     Active Substance: OMEPRAZOLE
  3. BENEFIBER                          /00677201/ [Concomitant]
     Active Substance: ICODEXTRIN
  4. CHOLESTEROL [Concomitant]
     Active Substance: CHOLESTEROL
  5. MYSOLINE [Concomitant]
     Active Substance: PRIMIDONE
  6. VITAMIN D [Concomitant]
     Active Substance: CHOLECALCIFEROL
  7. HUMALOG MIX50/50 [Concomitant]
     Active Substance: INSULIN LISPRO
  8. SINGULAIR [Concomitant]
     Active Substance: MONTELUKAST SODIUM
  9. VELTASSA [Suspect]
     Active Substance: PATIROMER
     Indication: HYPERKALAEMIA
     Dosage: 8.4 G, QD
     Route: 048
  10. COREG [Concomitant]
     Active Substance: CARVEDILOL
  11. AMOXAPINE. [Concomitant]
     Active Substance: AMOXAPINE
  12. ASPIRIN                            /00002701/ [Concomitant]
     Active Substance: ASPIRIN
  13. HYDRALAZINE HCL [Concomitant]
     Active Substance: HYDRALAZINE HYDROCHLORIDE
  14. LEVOTHYROXINE SODIUM. [Concomitant]
     Active Substance: LEVOTHYROXINE SODIUM
  15. COLONAID [Concomitant]
  16. LASIX [Concomitant]
     Active Substance: FUROSEMIDE
  17. IRON                               /00023505/ [Concomitant]
  18. VICODIN HP [Concomitant]
     Active Substance: ACETAMINOPHEN\HYDROCODONE BITARTRATE
  19. CRESTOR [Concomitant]
     Active Substance: ROSUVASTATIN CALCIUM

REACTIONS (1)
  - Diarrhoea [Unknown]

NARRATIVE: CASE EVENT DATE: 20160718
